FAERS Safety Report 5581828-1 (Version None)
Quarter: 2008Q1

REPORT INFORMATION
  Report Type: 
  Country: None (occurrence: None)
  Receive Date: 20080104
  Receipt Date: 20071227
  Transmission Date: 20080703
  Serious: Yes (Hospitalization)
  Sender: FDA-Public Use
  Company Number: JP-PFIZER INC-2007107837

PATIENT
  Sex: Female

DRUGS (1)
  1. HALCION [Suspect]
     Dosage: DAILY DOSE:.25MG
     Route: 048

REACTIONS (2)
  - OVERDOSE [None]
  - PULMONARY EMBOLISM [None]
